FAERS Safety Report 8419484-7 (Version None)
Quarter: 2012Q2

REPORT INFORMATION
  Report Type: 
  Country: None (occurrence: None)
  Receive Date: 20120607
  Receipt Date: 20120530
  Transmission Date: 20120825
  Serious: Yes (Other)
  Sender: FDA-Public Use
  Company Number: US-MPIJNJ-2012-03932

PATIENT
  Age: 78 Year
  Sex: Male

DRUGS (5)
  1. LENALIDOMIDE [Suspect]
     Indication: MULTIPLE MYELOMA
     Dosage: UNK
     Route: 048
     Dates: start: 20110801
  2. VELCADE [Suspect]
     Indication: MULTIPLE MYELOMA
     Dosage: UNK
     Route: 042
     Dates: start: 20090301, end: 20090501
  3. VELCADE [Suspect]
     Dosage: UNK
     Route: 058
     Dates: start: 20110801
  4. DEXAMETHASONE [Suspect]
     Indication: MULTIPLE MYELOMA
     Dosage: UNK
     Dates: start: 20090301, end: 20090501
  5. DEXAMETHASONE [Suspect]
     Dosage: UNK
     Route: 048
     Dates: start: 20110801

REACTIONS (3)
  - NEUROPATHY PERIPHERAL [None]
  - TOXIC EPIDERMAL NECROLYSIS [None]
  - INJECTION SITE REACTION [None]
